FAERS Safety Report 5537946-7 (Version None)
Quarter: 2007Q4

REPORT INFORMATION
  Report Type: 
  Country: None (occurrence: None)
  Receive Date: 20071207
  Receipt Date: 20071127
  Transmission Date: 20080405
  Serious: Yes (Other)
  Sender: FDA-Public Use
  Company Number: US-PFIZER INC-2007100269

PATIENT
  Sex: Male

DRUGS (11)
  1. LYRICA [Suspect]
     Indication: BACK PAIN
  2. OXYCONTIN [Concomitant]
  3. ATENOLOL [Concomitant]
  4. CYMBALTA [Concomitant]
  5. ACTOS [Concomitant]
  6. MELATONIN [Concomitant]
  7. IRON [Concomitant]
  8. MAGNESIUM SULFATE [Concomitant]
  9. POTASSIUM CHLORIDE [Concomitant]
  10. PREVACID [Concomitant]
  11. LUNESTA [Concomitant]

REACTIONS (4)
  - LYMPHOCYTE COUNT DECREASED [None]
  - LYMPHOCYTE COUNT INCREASED [None]
  - MACROCYTOSIS [None]
  - NEUTROPHIL COUNT INCREASED [None]
